FAERS Safety Report 4892697-7 (Version None)
Quarter: 2006Q1

REPORT INFORMATION
  Report Type: 
  Country: None (occurrence: None)
  Receive Date: 20060125
  Receipt Date: 20060125
  Transmission Date: 20060701
  Serious: Yes (Life-Threatening, Hospitalization)
  Sender: FDA-Public Use
  Company Number: None

PATIENT
  Sex: Male

DRUGS (7)
  1. LIDOCAINE [Suspect]
     Indication: VENTRICULAR TACHYCARDIA
     Dosage: IV
     Route: 042
     Dates: start: 20050912
  2. DIGOXIN [Concomitant]
  3. CARVEDILOL [Concomitant]
  4. FUROSEMIDE [Concomitant]
  5. POTASSIUM CHLORIDE [Concomitant]
  6. ALBUTEROL/ATROVENT [Concomitant]
  7. METOLAZONE [Concomitant]

REACTIONS (6)
  - ARRHYTHMIA [None]
  - BLOOD GLUCOSE DECREASED [None]
  - CARDIO-RESPIRATORY ARREST [None]
  - CONDITION AGGRAVATED [None]
  - ELECTROLYTE IMBALANCE [None]
  - ELECTROMECHANICAL DISSOCIATION [None]
